FAERS Safety Report 23885215 (Version 1)
Quarter: 2024Q2

REPORT INFORMATION
  Report Type: Spontaneous
  Country: GR (occurrence: GR)
  Receive Date: 20240522
  Receipt Date: 20240522
  Transmission Date: 20240716
  Serious: Yes (Other)
  Sender: FDA-Public Use
  Company Number: GR-SA-2024SA150202

PATIENT
  Age: 72 Year
  Sex: Female

DRUGS (1)
  1. ENOXAPARIN SODIUM [Suspect]
     Active Substance: ENOXAPARIN SODIUM
     Indication: Prophylaxis
     Dosage: UNK

REACTIONS (4)
  - Hypovolaemic shock [Unknown]
  - Abdominal wall haematoma [Unknown]
  - Abdominal pain [Unknown]
  - Abdominal mass [Unknown]
